FAERS Safety Report 7407905-8 (Version None)
Quarter: 2011Q2

REPORT INFORMATION
  Report Type: 
  Country: None (occurrence: None)
  Receive Date: 20110412
  Receipt Date: 20110406
  Transmission Date: 20111010
  Serious: No
  Sender: FDA-Public Use
  Company Number: US-PFIZER INC-2011076650

PATIENT
  Sex: Female

DRUGS (5)
  1. VITAMIN D [Concomitant]
     Dosage: UNK, ONCE DAILY
  2. CENTRUM [Concomitant]
     Dosage: UNK, ONCE DAILY
  3. PREMARIN [Suspect]
     Indication: MENOPAUSE
     Dosage: 1 G, 1X/DAY
     Route: 067
     Dates: start: 20110331
  4. ASCORBIC ACID [Concomitant]
     Dosage: UNK, ONCE DAILY
  5. FISH OIL [Concomitant]
     Dosage: UNK, ONCE DAILY

REACTIONS (1)
  - BURNING SENSATION [None]
